FAERS Safety Report 8491619 (Version 3)
Quarter: 2013Q3

REPORT INFORMATION
  Report Type: Report from Study
  Country: US (occurrence: US)
  Receive Date: 20120403
  Receipt Date: 20130812
  Transmission Date: 20140515
  Serious: Yes (Death, Life-Threatening, Hospitalization, Other)
  Sender: FDA-Public Use
  Company Number: US-ROCHE-1054502

PATIENT
  Age: 65 Year
  Sex: Male
  Weight: 117 kg

DRUGS (5)
  1. TRASTUZUMAB [Suspect]
     Indication: OESOPHAGEAL ADENOCARCINOMA
     Dosage: 4 MG/KG. 09/JAN/2012: 1851 MG
     Route: 042
     Dates: start: 20111114, end: 20120109
  2. TRASTUZUMAB [Suspect]
     Dosage: 2 MG/KG
     Route: 042
  3. TRASTUZUMAB [Suspect]
     Dosage: 6 MG/KG IV
     Route: 042
  4. PACLITAXEL [Suspect]
     Indication: OESOPHAGEAL ADENOCARCINOMA
     Dosage: 19/DEC/2011: 612 MG
     Route: 042
     Dates: start: 20111114, end: 20111219
  5. CARBOPLATIN [Suspect]
     Indication: OESOPHAGEAL ADENOCARCINOMA
     Dosage: AUC=2, 19/DEC/2011: 1800 MG
     Route: 042
     Dates: start: 20111114, end: 20111219

REACTIONS (7)
  - Bronchopleural fistula [Fatal]
  - Respiratory failure [Not Recovered/Not Resolved]
  - Renal failure acute [Not Recovered/Not Resolved]
  - Sepsis [Not Recovered/Not Resolved]
  - Hepatic failure [Not Recovered/Not Resolved]
  - Hypotension [Unknown]
  - Leukocytosis [Unknown]
